FAERS Safety Report 7544208-5 (Version None)
Quarter: 2011Q2

REPORT INFORMATION
  Report Type: 
  Country: None (occurrence: None)
  Receive Date: 20110613
  Receipt Date: 20060928
  Transmission Date: 20111010
  Serious: Yes (Death, Hospitalization)
  Sender: FDA-Public Use
  Company Number: PHHO2006ES15176

PATIENT
  Age: 75 Year
  Sex: Male

DRUGS (5)
  1. DACORTIN [Concomitant]
  2. ZOLEDRONIC ACID [Suspect]
     Dosage: 4 MG, QMO
     Route: 042
     Dates: start: 20060223
  3. RADIOTHERAPY [Concomitant]
  4. ESPIDIFEN [Concomitant]
  5. DURAGESIC-100 [Concomitant]

REACTIONS (2)
  - CHRONIC OBSTRUCTIVE PULMONARY DISEASE [None]
  - GENERAL PHYSICAL HEALTH DETERIORATION [None]
